FAERS Safety Report 8819708 (Version 2)
Quarter: 2013Q1

REPORT INFORMATION
  Report Type: Report from Study
  Country: CA (occurrence: CA)
  Receive Date: 20121001
  Receipt Date: 20130121
  Transmission Date: 20140127
  Serious: Yes (Other)
  Sender: FDA-Public Use
  Company Number: CA-JNJFOC-20120908786

PATIENT
  Sex: Female
  Weight: 58.5 kg

DRUGS (4)
  1. REMICADE [Suspect]
     Indication: RHEUMATOID ARTHRITIS
     Route: 042
     Dates: start: 20050511
  2. REMICADE [Suspect]
     Indication: RHEUMATOID ARTHRITIS
     Route: 042
     Dates: start: 20120717
  3. METHOTREXATE [Concomitant]
     Route: 048
  4. UNKNOWN MEDICATION [Concomitant]
     Route: 065

REACTIONS (1)
  - Cataract [Unknown]
